FAERS Safety Report 8828336 (Version 3)
Quarter: 2013Q2

REPORT INFORMATION
  Report Type: Spontaneous
  Country: JP (occurrence: JP)
  Receive Date: 20121005
  Receipt Date: 20130611
  Transmission Date: 20140414
  Serious: Yes (Death, Hospitalization, Other)
  Sender: FDA-Public Use
  Company Number: JP-PFIZER INC-2012232581

PATIENT
  Age: 71 Year
  Sex: Female

DRUGS (1)
  1. MEDROL [Suspect]
     Indication: SYSTEMIC LUPUS ERYTHEMATOSUS
     Dosage: 4 MG, DAILY
     Route: 048

REACTIONS (2)
  - Abscess limb [Fatal]
  - Mycobacterium fortuitum infection [Fatal]
